FAERS Safety Report 12562500 (Version 2)
Quarter: 2016Q3

REPORT INFORMATION
  Report Type: Spontaneous
  Country: DE (occurrence: DE)
  Receive Date: 20160715
  Receipt Date: 20160909
  Transmission Date: 20161109
  Serious: Yes (Other)
  Sender: FDA-Public Use
  Company Number: DE-TEVA-674597GER

PATIENT
  Age: 8 Decade
  Sex: Male

DRUGS (6)
  1. TAMSULOSIN ABZ 0,4 MG HARTKAPSELN [Suspect]
     Active Substance: TAMSULOSIN HYDROCHLORIDE
     Indication: BENIGN PROSTATIC HYPERPLASIA
     Route: 048
  2. VALSARTAN ABZ 80MG [Concomitant]
  3. TORASEMID AL 10 MG [Concomitant]
     Dosage: 5 MILLIGRAM DAILY;
  4. BISOPROLOL 2.5 MG [Concomitant]
     Active Substance: BISOPROLOL
  5. TAMSULOSIN ABZ 0,4 MG HARTKAPSELN [Suspect]
     Active Substance: TAMSULOSIN HYDROCHLORIDE
     Dosage: TAMSULOSIN ABZ 0,4 MG HARTKAPSELN MIT VER?NDERTER WIRKSTOFFFREISETZUNG
     Route: 048
     Dates: start: 201604
  6. ASS 100MG [Concomitant]
     Active Substance: ASPIRIN

REACTIONS (4)
  - Dyspnoea [Unknown]
  - Myocardial infarction [Unknown]
  - Drug ineffective [Unknown]
  - Product formulation issue [Unknown]

NARRATIVE: CASE EVENT DATE: 2012
